FAERS Safety Report 21109113 (Version 1)
Quarter: 2022Q3

REPORT INFORMATION
  Report Type: Report from Study
  Country: US (occurrence: None)
  Receive Date: 20220721
  Receipt Date: 20220721
  Transmission Date: 20221026
  Serious: Yes (Hospitalization)
  Sender: FDA-Public Use
  Company Number: US-ROCHE-3141309

PATIENT
  Age: 53 Year
  Sex: Female
  Weight: 58.8 kg

DRUGS (3)
  1. OBINUTUZUMAB [Suspect]
     Active Substance: OBINUTUZUMAB
     Indication: Chronic lymphocytic leukaemia
     Dosage: (1000 MG DAY 1, CYCLE 2-6), 900 MG ON DAY 2, CYCLE 1, OVER 4 HOURS ON DAYS 1, 2, 8, AND 15 OF CYCLE
     Route: 042
     Dates: start: 20210504
  2. VENETOCLAX [Suspect]
     Active Substance: VENETOCLAX
     Indication: Chronic lymphocytic leukaemia
     Dosage: ON 06/JUN/2022, LAST DOSE OF VENETOCLAX 400 MG ADMINISTERED.?20 MG PO QD DAYS 1-7 CYCLE 3, 50 MG PO
     Route: 048
     Dates: start: 20210504
  3. IBRUTINIB [Suspect]
     Active Substance: IBRUTINIB
     Indication: Chronic lymphocytic leukaemia
     Dosage: ON 18/JUN/2022, LAST DOSE OF IBRUTINIB 420 MG ADMINISTERED.
     Route: 048
     Dates: start: 20210504

REACTIONS (2)
  - Dysphagia [Recovered/Resolved]
  - Pyrexia [Recovered/Resolved]

NARRATIVE: CASE EVENT DATE: 20220622
